FAERS Safety Report 9769856 (Version 2)
Quarter: 2013Q4

REPORT INFORMATION
  Report Type: Spontaneous
  Country: US (occurrence: US)
  Receive Date: 20131218
  Receipt Date: 20131218
  Transmission Date: 20140711
  Serious: No
  Sender: FDA-Public Use
  Company Number: US-VERTEX PHARMACEUTICALS INC-AE-2011-000578

PATIENT
  Sex: 0

DRUGS (12)
  1. INCIVEK [Suspect]
     Indication: HEPATITIS C
     Dates: start: 20110717
  2. PEGINTRON [Concomitant]
     Indication: HEPATITIS C
     Route: 058
     Dates: start: 20110717
  3. RIBAVIRIN [Concomitant]
     Indication: HEPATITIS C
     Route: 048
     Dates: start: 20110717
  4. SPIRONOLACTONE [Concomitant]
     Route: 048
  5. OMEPRAZOLE [Concomitant]
     Route: 048
  6. XIFAXAN [Concomitant]
     Route: 048
  7. FUROSEMIDE [Concomitant]
     Route: 048
  8. LEVOROXIN [Concomitant]
     Route: 048
  9. PROMETHAZINE [Concomitant]
     Indication: NAUSEA
     Route: 048
  10. AMBIEN [Concomitant]
     Route: 048
  11. CITALOPRAM [Concomitant]
     Route: 048
  12. LEXAPRO [Concomitant]
     Route: 048

REACTIONS (2)
  - Mouth ulceration [Not Recovered/Not Resolved]
  - Fatigue [Unknown]
